FAERS Safety Report 12923884 (Version 1)
Quarter: 2016Q4

REPORT INFORMATION
  Report Type: Report from Study
  Country: US (occurrence: US)
  Receive Date: 20161108
  Receipt Date: 20161108
  Transmission Date: 20170207
  Serious: Yes (Other)
  Sender: FDA-Public Use
  Company Number: US-BAYER-2016-208621

PATIENT
  Age: 62 Year
  Sex: Male

DRUGS (1)
  1. STIVARGA [Suspect]
     Active Substance: REGORAFENIB
     Indication: COLORECTAL CANCER
     Dosage: 160 MG, QD
     Route: 048
     Dates: start: 20161021, end: 20161029

REACTIONS (8)
  - Blister [None]
  - Dry skin [None]
  - Skin fissures [None]
  - Asthenia [None]
  - Fatigue [None]
  - Confusional state [None]
  - Diarrhoea [None]
  - Fall [None]

NARRATIVE: CASE EVENT DATE: 201610
